FAERS Safety Report 8574092-2 (Version None)
Quarter: 2012Q3

REPORT INFORMATION
  Report Type: 
  Country: None (occurrence: None)
  Receive Date: 20120806
  Receipt Date: 20120801
  Transmission Date: 20120928
  Serious: Yes (Other)
  Sender: FDA-Public Use
  Company Number: PHHY2012AU062031

PATIENT
  Sex: Male
  Weight: 97 kg

DRUGS (5)
  1. PERINDOPRIL ERBUMINE [Concomitant]
     Indication: HYPERTENSION
     Dosage: 10 MG, (IN MORNING)
     Route: 048
  2. CLOZARIL [Suspect]
     Indication: SCHIZOAFFECTIVE DISORDER
     Dosage: 325 MG
     Route: 048
     Dates: start: 19990113, end: 20120628
  3. VALPROATE BISMUTH [Concomitant]
     Indication: MANIA
     Dosage: 1700 MG, DAILY
     Route: 048
     Dates: start: 20120630
  4. LITHIUM CARBONATE [Concomitant]
     Dosage: 900 MG, DAILY
     Route: 048
     Dates: start: 20120724
  5. ATENOLOL [Concomitant]
     Indication: HYPERTENSION
     Dosage: 25 MG, ( IN MORNING)
     Route: 048

REACTIONS (1)
  - BUNDLE BRANCH BLOCK RIGHT [None]
